FAERS Safety Report 14498033 (Version 1)
Quarter: 2018Q1

REPORT INFORMATION
  Report Type: Spontaneous
  Country: US (occurrence: US)
  Receive Date: 20180206
  Receipt Date: 20180206
  Transmission Date: 20180509
  Serious: No
  Sender: FDA-Public Use
  Company Number: None

PATIENT
  Age: 72 Year
  Sex: Female

DRUGS (1)
  1. ELIQUIS [Suspect]
     Active Substance: APIXABAN
     Route: 048
     Dates: start: 20180124, end: 20180127

REACTIONS (3)
  - Peripheral swelling [None]
  - Asthenia [None]
  - Blood urine present [None]

NARRATIVE: CASE EVENT DATE: 20180127
